FAERS Safety Report 23979074 (Version 1)
Quarter: 2024Q2

REPORT INFORMATION
  Report Type: Spontaneous
  Country: US (occurrence: US)
  Receive Date: 20240615
  Receipt Date: 20240615
  Transmission Date: 20240716
  Serious: Yes (Hospitalization, Other)
  Sender: FDA-Public Use
  Company Number: US-GRAVITIPHARMA-GRA-2406-US-LIT-0168

PATIENT
  Age: 16 Year
  Sex: Female

DRUGS (3)
  1. BACLOFEN [Suspect]
     Active Substance: BACLOFEN
     Indication: Product used for unknown indication
     Route: 037
  2. BACLOFEN [Suspect]
     Active Substance: BACLOFEN
     Route: 037
  3. BACLOFEN [Suspect]
     Active Substance: BACLOFEN
     Route: 037

REACTIONS (5)
  - Respiratory depression [Recovered/Resolved]
  - Nystagmus [Recovered/Resolved]
  - Dysphagia [Recovered/Resolved]
  - Lethargy [Unknown]
  - Toxicity to various agents [Unknown]
